FAERS Safety Report 7582198-X (Version None)
Quarter: 2011Q2

REPORT INFORMATION
  Report Type: 
  Country: None (occurrence: None)
  Receive Date: 20110630
  Receipt Date: 20110623
  Transmission Date: 20111010
  Serious: Yes (Hospitalization, Other)
  Sender: FDA-Public Use
  Company Number: GB-AMGEN-GBRSP2011032753

PATIENT
  Age: 44 Year
  Sex: Male

DRUGS (4)
  1. FERROUS SULFATE TAB [Concomitant]
     Dosage: 200 MG, 3X/DAY
  2. ACETAMINOPHEN [Concomitant]
     Dosage: UNK UNK, PRN
  3. PREDNISOLONE [Concomitant]
     Dosage: 15 MG, UNK
  4. ENBREL [Suspect]
     Indication: ANKYLOSING SPONDYLITIS
     Dosage: 50 MG, WEEKLY
     Route: 058
     Dates: end: 20110601

REACTIONS (3)
  - PULMONARY EMBOLISM [None]
  - ANKYLOSING SPONDYLITIS [None]
  - LOWER RESPIRATORY TRACT INFECTION [None]
